FAERS Safety Report 21395513 (Version 2)
Quarter: 2022Q4

REPORT INFORMATION
  Report Type: Spontaneous
  Country: JP (occurrence: JP)
  Receive Date: 20220930
  Receipt Date: 20221007
  Transmission Date: 20230112
  Serious: Yes (Hospitalization, Other)
  Sender: FDA-Public Use
  Company Number: JP-NOVARTISPH-NVSJ2022JP098208

PATIENT
  Age: 70 Year
  Sex: Male

DRUGS (4)
  1. AFINITOR [Suspect]
     Active Substance: EVEROLIMUS
     Indication: Small intestine neuroendocrine tumour
     Dosage: UNK
     Route: 048
     Dates: start: 2019
  2. STREPTOZOCIN [Concomitant]
     Active Substance: STREPTOZOCIN
     Indication: Small intestine neuroendocrine tumour
     Dosage: UNK
     Route: 065
     Dates: start: 2019
  3. SUNITINIB [Concomitant]
     Active Substance: SUNITINIB
     Indication: Small intestine neuroendocrine tumour
     Dosage: UNK
     Route: 065
     Dates: start: 2020
  4. LANREOTIDE ACETATE [Concomitant]
     Active Substance: LANREOTIDE ACETATE
     Indication: Small intestine neuroendocrine tumour
     Dosage: UNK
     Route: 065
     Dates: start: 2020

REACTIONS (5)
  - Small intestine neuroendocrine tumour [Unknown]
  - Malignant neoplasm progression [Unknown]
  - Metastases to liver [Unknown]
  - Duodenal stenosis [Unknown]
  - Eating disorder [Unknown]

NARRATIVE: CASE EVENT DATE: 20190101
